FAERS Safety Report 16004855 (Version 1)
Quarter: 2019Q1

REPORT INFORMATION
  Report Type: Spontaneous
  Country: FR (occurrence: FR)
  Receive Date: 20190226
  Receipt Date: 20190226
  Transmission Date: 20190418
  Serious: Yes (Hospitalization, Other)
  Sender: FDA-Public Use
  Company Number: FR-ACCORD-109169

PATIENT
  Age: 88 Year
  Sex: Male
  Weight: 62 kg

DRUGS (4)
  1. ALLOPURINOL. [Suspect]
     Active Substance: ALLOPURINOL
     Indication: GOUT
     Route: 048
  2. BACTRIM [Interacting]
     Active Substance: SULFAMETHOXAZOLE\TRIMETHOPRIM
     Indication: DERMO-HYPODERMITIS
     Route: 048
     Dates: start: 20180518, end: 20180522
  3. PYOSTACINE [Interacting]
     Active Substance: PRISTINAMYCIN
     Indication: DERMO-HYPODERMITIS
     Route: 048
     Dates: start: 20180518, end: 20180522
  4. COUMADINE [Interacting]
     Active Substance: WARFARIN SODIUM
     Indication: ATRIAL FIBRILLATION
     Route: 048
     Dates: end: 20180522

REACTIONS (2)
  - Haematuria [Recovered/Resolved]
  - Drug interaction [Unknown]

NARRATIVE: CASE EVENT DATE: 20180522
